FAERS Safety Report 5702213-5 (Version None)
Quarter: 2008Q2

REPORT INFORMATION
  Report Type: 
  Country: None (occurrence: None)
  Receive Date: 20080411
  Receipt Date: 20071221
  Transmission Date: 20081010
  Serious: No
  Sender: FDA-Public Use
  Company Number: US-ABBOTT-08P-163-0431771-00

PATIENT
  Sex: Female
  Weight: 66.738 kg

DRUGS (5)
  1. DEPAKOTE [Suspect]
     Indication: AFFECTIVE DISORDER
     Route: 048
     Dates: start: 20071206
  2. DEPAKOTE [Suspect]
  3. DEPAKOTE ER [Suspect]
     Indication: AFFECTIVE DISORDER
     Route: 048
     Dates: start: 20071219
  4. ARIPIPRAZOLE [Concomitant]
     Indication: AFFECTIVE DISORDER
     Route: 048
  5. CLONAZEPAM [Concomitant]
     Indication: AFFECTIVE DISORDER
     Route: 048

REACTIONS (11)
  - ABDOMINAL DISTENSION [None]
  - ANGER [None]
  - CRYING [None]
  - FEELING ABNORMAL [None]
  - HYPOAESTHESIA [None]
  - INSOMNIA [None]
  - JOINT STIFFNESS [None]
  - MUSCULOSKELETAL STIFFNESS [None]
  - PAIN [None]
  - UNEVALUABLE EVENT [None]
  - WEIGHT INCREASED [None]
